FAERS Safety Report 20486022 (Version 2)
Quarter: 2022Q1

REPORT INFORMATION
  Report Type: Spontaneous
  Country: US (occurrence: US)
  Receive Date: 20220217
  Receipt Date: 20220302
  Transmission Date: 20220423
  Serious: No
  Sender: FDA-Public Use
  Company Number: US-BAYER-2022A021629

PATIENT
  Age: 4 Year
  Sex: Male

DRUGS (3)
  1. KOGENATE FS [Suspect]
     Active Substance: ANTIHEMOPHILIC FACTOR, HUMAN RECOMBINANT
     Dosage: 1000 IU, Q3WK
  2. KOGENATE FS [Suspect]
     Active Substance: ANTIHEMOPHILIC FACTOR, HUMAN RECOMBINANT
     Dosage: UNK, EXTRA DOSE FOR THE HEAD INJURY TREATMENT
     Dates: start: 20220131
  3. KOGENATE FS [Suspect]
     Active Substance: ANTIHEMOPHILIC FACTOR, HUMAN RECOMBINANT
     Dosage: UNK, EXTRA DOSE FOR THE KNEE INJURY TREATMENT
     Dates: start: 20220205

REACTIONS (2)
  - Head injury [None]
  - Joint injury [None]

NARRATIVE: CASE EVENT DATE: 20220131
